FAERS Safety Report 8985347 (Version 2)
Quarter: 2013Q1

REPORT INFORMATION
  Report Type: Spontaneous
  Country: US (occurrence: US)
  Receive Date: 20121226
  Receipt Date: 20130102
  Transmission Date: 20140127
  Serious: Yes (Other)
  Sender: FDA-Public Use
  Company Number: US-PFIZER INC-2012326917

PATIENT
  Age: 81 Year
  Sex: Male
  Weight: 73 kg

DRUGS (3)
  1. PROTONIX [Suspect]
     Indication: DYSPEPSIA
     Dosage: 40 MG, 2X/DAY
  2. NORVASC [Suspect]
     Indication: HYPERTENSION
     Dosage: UNK, DAILY
  3. PRADAXA [Suspect]
     Indication: ANTICOAGULANT THERAPY
     Dosage: 150 MG, UNK

REACTIONS (1)
  - Haemorrhage [Recovered/Resolved]
